FAERS Safety Report 9828436 (Version 2)
Quarter: 2014Q1

REPORT INFORMATION
  Report Type: Spontaneous
  Country: DK (occurrence: FR)
  Receive Date: 20140117
  Receipt Date: 20140128
  Transmission Date: 20141002
  Serious: Yes (Hospitalization)
  Sender: FDA-Public Use
  Company Number: FR-FRI-1000052920

PATIENT
  Age: 88 Year
  Sex: Male

DRUGS (7)
  1. ESCITALOPRAM [Suspect]
     Dosage: 1 DF
     Route: 048
     Dates: end: 20131205
  2. KARDEGIC [Suspect]
     Indication: PROPHYLAXIS
     Dosage: 1 DF
     Route: 048
     Dates: end: 20131204
  3. PLAVIX [Suspect]
     Indication: PROPHYLAXIS
     Dosage: 1 DF
     Route: 048
     Dates: end: 20131204
  4. LASILIX [Concomitant]
     Dosage: 1 DF
     Route: 048
  5. TAHOR [Concomitant]
     Dosage: 1 DF
     Route: 048
     Dates: end: 20131205
  6. ZYLORIC [Concomitant]
     Indication: HYPERURICAEMIA
     Dosage: 1 DF
     Route: 048
     Dates: end: 20131205
  7. RISPERDAL [Concomitant]
     Indication: AGITATION
     Route: 048
     Dates: end: 20131205

REACTIONS (1)
  - Haemorrhagic stroke [Recovered/Resolved with Sequelae]
